FAERS Safety Report 10690654 (Version 3)
Quarter: 2015Q1

REPORT INFORMATION
  Report Type: Spontaneous
  Country: SG (occurrence: SG)
  Receive Date: 20150105
  Receipt Date: 20150216
  Transmission Date: 20150720
  Serious: Yes (Life-Threatening, Other)
  Sender: FDA-Public Use
  Company Number: SG-BAXTER-2014BAX077381

PATIENT
  Age: 27 Year
  Sex: Male

DRUGS (2)
  1. TISSEEL KIT [Suspect]
     Active Substance: FIBRINOGEN HUMAN\THROMBIN HUMAN
     Indication: GASTRECTOMY
     Route: 061
     Dates: start: 20141223, end: 20141223
  2. TISSEEL KIT [Suspect]
     Active Substance: FIBRINOGEN HUMAN\THROMBIN HUMAN
     Indication: OFF LABEL USE

REACTIONS (2)
  - Post procedural complication [Recovered/Resolved]
  - Circulatory collapse [Recovered/Resolved]

NARRATIVE: CASE EVENT DATE: 20141223
